FAERS Safety Report 16289747 (Version 1)
Quarter: 2019Q2

REPORT INFORMATION
  Report Type: Spontaneous
  Country: US (occurrence: US)
  Receive Date: 20190404
  Receipt Date: 20190404
  Transmission Date: 20190711
  Serious: No
  Sender: FDA-Public Use
  Company Number: None

PATIENT

DRUGS (3)
  1. AMIODARONE TABLETS [Suspect]
     Active Substance: AMIODARONE
  2. FLUCONAZOLE. [Suspect]
     Active Substance: FLUCONAZOLE
  3. AMLODIPINE [Suspect]
     Active Substance: AMLODIPINE BESYLATE

REACTIONS (2)
  - Product prescribing error [None]
  - Wrong product administered [None]
